FAERS Safety Report 8995212 (Version 1)
Quarter: 2012Q4

REPORT INFORMATION
  Report Type: Spontaneous
  Country: FR (occurrence: None)
  Receive Date: 20121221
  Receipt Date: 20121221
  Transmission Date: 20130627
  Serious: Yes (Hospitalization)
  Sender: FDA-Public Use
  Company Number: DSA_61470_2012

PATIENT
  Age: 79 Year
  Sex: Male

DRUGS (8)
  1. MONO-TILDIEM [Suspect]
     Indication: PRODUCT USED FOR UNKNOWN INDICATION
     Dosage: (1 unit; Daily Oral)
     Route: 048
     Dates: start: 20120917, end: 20120929
  2. DABIGATRAN [Suspect]
     Indication: PRODUCT USED FOR UNKNOWN INDICATION
     Route: 048
     Dates: start: 20120917, end: 20120929
  3. SPIRIVA [Concomitant]
  4. SERETIDE [Concomitant]
  5. LASILIX /00032601/ [Concomitant]
  6. DIFFU K [Concomitant]
  7. DISCOTRINE [Concomitant]
  8. COAPROVEL [Concomitant]

REACTIONS (2)
  - Rash maculo-papular [None]
  - Pruritus [None]
